FAERS Safety Report 19292735 (Version 1)
Quarter: 2021Q2

REPORT INFORMATION
  Report Type: Spontaneous
  Country: US (occurrence: US)
  Receive Date: 20210521
  Receipt Date: 20210521
  Transmission Date: 20210717
  Serious: Yes (Hospitalization, Disabling, Other)
  Sender: FDA-Public Use
  Company Number: None

PATIENT
  Age: 29 Year
  Sex: Male
  Weight: 72 kg

DRUGS (1)
  1. CIPROFLOXACIN. [Suspect]
     Active Substance: CIPROFLOXACIN
     Indication: PROSTATITIS
     Route: 048
     Dates: start: 20200204, end: 20200218

REACTIONS (9)
  - Muscle spasms [None]
  - Headache [None]
  - Gastrointestinal disorder [None]
  - Flashback [None]
  - Posture abnormal [None]
  - Palpitations [None]
  - Visual impairment [None]
  - Neuralgia [None]
  - Pain [None]

NARRATIVE: CASE EVENT DATE: 20200204
